FAERS Safety Report 5207545-5 (Version None)
Quarter: 2006Q4

REPORT INFORMATION
  Report Type: 
  Country: None (occurrence: None)
  Receive Date: 20061030
  Receipt Date: 20060814
  Transmission Date: 20070319
  Serious: No
  Sender: FDA-Public Use
  Company Number: 256079

PATIENT
  Age: 32 Year
  Sex: Female
  Weight: 70.3 kg

DRUGS (3)
  1. LEVEMIR [Suspect]
     Indication: INSULIN-REQUIRING TYPE II DIABETES MELLITUS
     Dosage: 60 IU,QD, SUBCUTANEOUS
     Route: 058
     Dates: start: 20060601
  2. HUMALOG /00030501/(INSULIN) [Concomitant]
  3. GLUCOPHAGE /00082701/(METFORMIN) [Concomitant]

REACTIONS (1)
  - INJECTION SITE INFLAMMATION [None]
